FAERS Safety Report 6711891-3 (Version None)
Quarter: 2010Q2

REPORT INFORMATION
  Report Type: 
  Country: None (occurrence: None)
  Receive Date: 20100505
  Receipt Date: 20100428
  Transmission Date: 20101027
  Serious: Yes (Hospitalization)
  Sender: FDA-Public Use
  Company Number: JP-MERCK-1004USA03237

PATIENT
  Age: 76 Year
  Sex: Male
  Weight: 38 kg

DRUGS (12)
  1. JANUVIA [Suspect]
     Indication: DIABETES MELLITUS
     Route: 048
     Dates: start: 20100305, end: 20100318
  2. NORVASC [Concomitant]
     Route: 048
  3. CANDESARTAN CILEXETIL [Concomitant]
     Route: 048
  4. LASIX [Concomitant]
     Route: 048
  5. ITOROL [Concomitant]
     Route: 048
  6. ASPIRIN [Concomitant]
     Route: 048
  7. METHYCOBAL [Concomitant]
     Route: 048
  8. GLYCYRON [Concomitant]
     Route: 048
  9. URSO 250 [Concomitant]
     Route: 048
  10. ALDACTONE [Concomitant]
     Route: 048
  11. HUMALOG [Concomitant]
     Dosage: 4-4-2
     Route: 058
     Dates: end: 20100304
  12. HUMALOG [Concomitant]
     Dosage: 6-4-4
     Route: 058
     Dates: start: 20100318

REACTIONS (1)
  - ENTEROCOLITIS [None]
